FAERS Safety Report 7416314-7 (Version None)
Quarter: 2011Q2

REPORT INFORMATION
  Report Type: 
  Country: None (occurrence: None)
  Receive Date: 20110414
  Receipt Date: 20110412
  Transmission Date: 20111010
  Serious: Yes (Other)
  Sender: FDA-Public Use
  Company Number: US-PFIZER INC-2011080822

PATIENT

DRUGS (1)
  1. GEODON [Suspect]
     Dosage: 20 MG, 1X/DAY
     Route: 030

REACTIONS (1)
  - ANAPHYLACTIC REACTION [None]
